FAERS Safety Report 23722786 (Version 3)
Quarter: 2024Q2

REPORT INFORMATION
  Report Type: Spontaneous
  Country: CA (occurrence: CA)
  Receive Date: 20240409
  Receipt Date: 20240605
  Transmission Date: 20240716
  Serious: Yes (Other)
  Sender: FDA-Public Use
  Company Number: CA-PFIZER INC-202300253565

PATIENT
  Age: 36 Year
  Sex: Female
  Weight: 90.7 kg

DRUGS (3)
  1. RUXIENCE [Suspect]
     Active Substance: RITUXIMAB-PVVR
     Indication: Scleroderma
     Dosage: 1000 MG, DAY 1, FOR 2 DOSES, 14 DAYS APART
     Route: 042
     Dates: start: 20231103
  2. RUXIENCE [Suspect]
     Active Substance: RITUXIMAB-PVVR
     Indication: Myositis
     Dosage: 1000 MG, AFTER 1 WEEK AND 6 DAYS (DAY 15)
     Route: 042
     Dates: start: 20231116
  3. RUXIENCE [Suspect]
     Active Substance: RITUXIMAB-PVVR
     Dosage: 500 MG, SINGLE DOSE TO BE ADMINISTERED IN MAY2024
     Route: 042
     Dates: start: 20240527, end: 20240527

REACTIONS (6)
  - Carpal tunnel syndrome [Recovering/Resolving]
  - Feeling hot [Recovered/Resolved]
  - Dyspnoea [Recovered/Resolved]
  - Dysgeusia [Recovered/Resolved]
  - Headache [Recovered/Resolved]
  - Off label use [Unknown]

NARRATIVE: CASE EVENT DATE: 20231101
